FAERS Safety Report 5594826-9 (Version None)
Quarter: 2008Q1

REPORT INFORMATION
  Report Type: 
  Country: None (occurrence: None)
  Receive Date: 20080117
  Receipt Date: 20080103
  Transmission Date: 20080703
  Serious: Yes (Hospitalization)
  Sender: FDA-Public Use
  Company Number: FR-WYE-H02127708

PATIENT
  Sex: Female

DRUGS (8)
  1. CORDARONE [Suspect]
     Indication: ATRIAL FIBRILLATION
     Route: 048
  2. TIAPRIDAL [Suspect]
     Route: 048
  3. NOCTRAN 10 [Concomitant]
     Route: 048
  4. LASIX [Suspect]
     Route: 048
  5. LANZOR [Suspect]
     Route: 048
     Dates: end: 20071019
  6. FORLAX [Suspect]
     Route: 048
  7. KARDEGIC [Suspect]
     Route: 048
  8. PYOSTACINE [Suspect]
     Indication: RASH ERYTHEMATOUS
     Dosage: 500 MG (FREQUENCY UNSPECIFIED)
     Route: 048
     Dates: start: 20071017, end: 20071019

REACTIONS (1)
  - ACUTE GENERALISED EXANTHEMATOUS PUSTULOSIS [None]
